FAERS Safety Report 6119425-1 (Version None)
Quarter: 2009Q1

REPORT INFORMATION
  Report Type: 
  Country: None (occurrence: None)
  Receive Date: 20090316
  Receipt Date: 20090306
  Transmission Date: 20090719
  Serious: Yes (Hospitalization)
  Sender: FDA-Public Use
  Company Number: A0772847A

PATIENT
  Age: 58 Year
  Sex: Male
  Weight: 99.5 kg

DRUGS (11)
  1. ROSIGLITAZONE MALEATE [Suspect]
     Indication: DIABETES MELLITUS
     Dosage: 8MG PER DAY
     Route: 048
     Dates: start: 20010101, end: 20070101
  2. GLUCOTROL [Concomitant]
  3. ATENOLOL [Concomitant]
  4. METOPROLOL TARTRATE [Concomitant]
  5. ZOCOR [Concomitant]
  6. LASIX [Concomitant]
  7. LISINOPRIL [Concomitant]
  8. NEURONTIN [Concomitant]
  9. SENNA [Concomitant]
  10. FOLIC ACID [Concomitant]
  11. VITAMIN E [Concomitant]

REACTIONS (4)
  - BLINDNESS UNILATERAL [None]
  - ISCHAEMIA [None]
  - MYOCARDIAL INFARCTION [None]
  - ROAD TRAFFIC ACCIDENT [None]
